FAERS Safety Report 22531193 (Version 1)
Quarter: 2023Q2

REPORT INFORMATION
  Report Type: Spontaneous
  Country: US (occurrence: None)
  Receive Date: 20230606
  Receipt Date: 20230606
  Transmission Date: 20230722
  Serious: No
  Sender: FDA-Public Use
  Company Number: None

PATIENT
  Sex: 0

DRUGS (1)
  1. DOCETAXEL [Suspect]
     Active Substance: DOCETAXEL

REACTIONS (4)
  - Dyspnoea [None]
  - Flushing [None]
  - Heart rate increased [None]
  - Infusion related reaction [None]
